FAERS Safety Report 9419949 (Version 1)
Quarter: 2013Q3

REPORT INFORMATION
  Report Type: Spontaneous
  Country: FR (occurrence: FR)
  Receive Date: 20130725
  Receipt Date: 20130725
  Transmission Date: 20140515
  Serious: Yes (Hospitalization)
  Sender: FDA-Public Use
  Company Number: FR-TEVA-421191ISR

PATIENT
  Age: 90 Year
  Sex: Female

DRUGS (3)
  1. FUROSEMIDE TEVA 40MG [Suspect]
     Indication: ESSENTIAL HYPERTENSION
     Route: 048
     Dates: end: 20130609
  2. ZOLPIDEM [Suspect]
     Dosage: 7.5 MILLIGRAM DAILY;
     Route: 048
  3. NEO MERCAZOLE [Concomitant]

REACTIONS (1)
  - Fall [Recovered/Resolved]
